FAERS Safety Report 23580270 (Version 3)
Quarter: 2024Q4

REPORT INFORMATION
  Report Type: Spontaneous
  Country: FR (occurrence: FR)
  Receive Date: 20240229
  Receipt Date: 20241115
  Transmission Date: 20250114
  Serious: Yes (Hospitalization, Other)
  Sender: PUMA
  Company Number: FR-PFM-2024-01184

PATIENT

DRUGS (5)
  1. NERLYNX [Suspect]
     Active Substance: NERATINIB
     Indication: HER2 positive breast cancer
     Dosage: UNK
     Route: 065
     Dates: start: 20231207, end: 202312
  2. NERLYNX [Suspect]
     Active Substance: NERATINIB
     Dosage: UNK
     Route: 048
  3. NERLYNX [Suspect]
     Active Substance: NERATINIB
     Dosage: UNK
     Route: 065
     Dates: start: 20231219, end: 20231222
  4. NERLYNX [Suspect]
     Active Substance: NERATINIB
     Dosage: 3 DF
     Route: 065
     Dates: start: 20240119, end: 20240125
  5. ULTRAVIST [Suspect]
     Active Substance: IOPROMIDE
     Indication: Positron emission tomogram
     Dosage: UNK
     Route: 065
     Dates: start: 20240117, end: 20240117

REACTIONS (6)
  - Drug reaction with eosinophilia and systemic symptoms [Recovered/Resolved]
  - Toxic skin eruption [Unknown]
  - Hepatotoxicity [Recovered/Resolved]
  - Condition aggravated [Recovered/Resolved]
  - Fatigue [Recovered/Resolved]
  - Drug intolerance [Unknown]

NARRATIVE: CASE EVENT DATE: 20240121
